FAERS Safety Report 10889599 (Version 1)
Quarter: 2015Q1

REPORT INFORMATION
  Report Type: Spontaneous
  Country: US (occurrence: US)
  Receive Date: 20150305
  Receipt Date: 20150305
  Transmission Date: 20150721
  Serious: Yes (Other)
  Sender: FDA-Public Use
  Company Number: US-GLAXOSMITHKLINE-US2015028300

PATIENT
  Age: 59 Year
  Sex: Male

DRUGS (2)
  1. STARLIX [Concomitant]
     Active Substance: NATEGLINIDE
  2. TANZEUM [Suspect]
     Active Substance: ALBIGLUTIDE
     Indication: TYPE 2 DIABETES MELLITUS
     Dosage: 30 MG, WE
     Route: 042
     Dates: start: 20141221, end: 20150215

REACTIONS (3)
  - Nausea [Unknown]
  - Malaise [Unknown]
  - Pancreatitis [Recovered/Resolved]
